FAERS Safety Report 9905169 (Version 3)
Quarter: 2014Q1

REPORT INFORMATION
  Report Type: Spontaneous
  Country: JP (occurrence: None)
  Receive Date: 20140211
  Receipt Date: 20140324
  Transmission Date: 20141002
  Serious: Yes (Hospitalization)
  Sender: FDA-Public Use
  Company Number: SP07489

PATIENT
  Sex: Male

DRUGS (2)
  1. MOVIPREP [Suspect]
     Indication: BOWEL PREPARATION
     Route: 048
     Dates: start: 20140122, end: 20140122
  2. ENEMA [Suspect]
     Indication: BOWEL PREPARATION
     Route: 054
     Dates: start: 20140122, end: 20140122

REACTIONS (5)
  - Vomiting [None]
  - Diarrhoea [None]
  - Abdominal pain [None]
  - Large intestine perforation [None]
  - Diverticular perforation [None]
